FAERS Safety Report 9232805 (Version 4)
Quarter: 2013Q4

REPORT INFORMATION
  Report Type: Spontaneous
  Country: JP (occurrence: JP)
  Receive Date: 20130416
  Receipt Date: 20131226
  Transmission Date: 20140711
  Serious: Yes (Disabling)
  Sender: FDA-Public Use
  Company Number: JP-AMGEN-JPNSP2013025449

PATIENT
  Age: 65 Year
  Sex: Female

DRUGS (1)
  1. RANMARK [Suspect]
     Indication: BREAST CANCER
     Dosage: 120 MG, TOTAL 11 TIMES
     Route: 058
     Dates: start: 201205, end: 201303

REACTIONS (1)
  - Osteonecrosis of jaw [Not Recovered/Not Resolved]
